FAERS Safety Report 12877533 (Version 7)
Quarter: 2019Q4

REPORT INFORMATION
  Report Type: Report from Study
  Country: US (occurrence: US)
  Receive Date: 20161024
  Receipt Date: 20191105
  Transmission Date: 20200122
  Serious: Yes (Other)
  Sender: FDA-Public Use
  Company Number: PHHY2016US099556

PATIENT
  Age: 50 Year
  Sex: Female

DRUGS (1)
  1. GILENYA [Suspect]
     Active Substance: FINGOLIMOD HYDROCHLORIDE
     Indication: MULTIPLE SCLEROSIS
     Dosage: UNK, QD
     Route: 048

REACTIONS (11)
  - Low density lipoprotein increased [Unknown]
  - Alanine aminotransferase increased [Recovered/Resolved]
  - Melanocytic naevus [Recovered/Resolved]
  - Blood alkaline phosphatase increased [Unknown]
  - White blood cell count decreased [Unknown]
  - Catheter site infection [Unknown]
  - Arthralgia [Unknown]
  - White blood cell count decreased [Recovered/Resolved]
  - Lentigo [Unknown]
  - Blood cholesterol increased [Unknown]
  - Lymphopenia [Unknown]

NARRATIVE: CASE EVENT DATE: 20160501
